FAERS Safety Report 15229762 (Version 1)
Quarter: 2018Q3

REPORT INFORMATION
  Report Type: Spontaneous
  Country: US (occurrence: US)
  Receive Date: 20180802
  Receipt Date: 20180802
  Transmission Date: 20181010
  Serious: Yes (Other)
  Sender: FDA-Public Use
  Company Number: US-ACCORD-062664

PATIENT
  Age: 49 Year
  Sex: Female
  Weight: 104.33 kg

DRUGS (4)
  1. DOCETAXEL ACCORD [Suspect]
     Active Substance: DOCETAXEL
     Indication: BREAST CANCER
     Dosage: NO OF CYCLE: 4
     Route: 042
     Dates: start: 20130531, end: 20130805
  2. RICINUS COMMUNIS [Concomitant]
  3. CYTOXAN [Suspect]
     Active Substance: CYCLOPHOSPHAMIDE
     Indication: BREAST CANCER
     Dosage: NO OF CYCLE: 04
     Dates: start: 20130531, end: 20130805
  4. COCOS NUCIFERA [Concomitant]

REACTIONS (1)
  - Alopecia [Not Recovered/Not Resolved]

NARRATIVE: CASE EVENT DATE: 20140201
